FAERS Safety Report 4732144-9 (Version None)
Quarter: 2005Q3

REPORT INFORMATION
  Report Type: 
  Country: None (occurrence: None)
  Receive Date: 20050725
  Receipt Date: 20011115
  Transmission Date: 20060218
  Serious: Yes (Death)
  Sender: FDA-Public Use
  Company Number: KII-2001-0012382

PATIENT
  Age: 42 Year
  Sex: Female

DRUGS (2)
  1. MS CONTIN [Suspect]
     Dosage: 120 MG, BID, UNKNOWN
     Route: 065
  2. SOMA [Concomitant]

REACTIONS (1)
  - OVERDOSE [None]
